FAERS Safety Report 7003894-9 (Version None)
Quarter: 2010Q3

REPORT INFORMATION
  Report Type: 
  Country: None (occurrence: None)
  Receive Date: 20100920
  Receipt Date: 20100105
  Transmission Date: 20110219
  Serious: No
  Sender: FDA-Public Use
  Company Number: US-WYE-H12890910

PATIENT
  Sex: Female
  Weight: 101.7 kg

DRUGS (9)
  1. PROTONIX [Suspect]
     Indication: GASTROOESOPHAGEAL REFLUX DISEASE
     Route: 048
     Dates: start: 20091001
  2. LOMOTIL [Concomitant]
  3. SYMBICORT [Concomitant]
  4. VENTOLIN [Concomitant]
  5. ATIVAN [Concomitant]
  6. LEXAPRO [Concomitant]
  7. RHINOCORT [Concomitant]
  8. VISTARIL [Concomitant]
  9. LASIX [Concomitant]

REACTIONS (1)
  - DRUG SCREEN POSITIVE [None]
